FAERS Safety Report 9130958 (Version 1)
Quarter: 2013Q1

REPORT INFORMATION
  Report Type: Spontaneous
  Country: GB (occurrence: GB)
  Receive Date: 20130301
  Receipt Date: 20130301
  Transmission Date: 20140127
  Serious: Yes (Hospitalization, Other)
  Sender: FDA-Public Use
  Company Number: GB-JNJFOC-20130214208

PATIENT
  Sex: 0

DRUGS (17)
  1. DOXORUBICIN [Suspect]
     Indication: UNDIFFERENTIATED SARCOMA
     Dosage: ADMINISTERTED OVER 2 DAYS FOR 14 DAY CYCLE
     Route: 042
  2. DOXORUBICIN [Suspect]
     Indication: DESMOPLASTIC SMALL ROUND CELL TUMOUR
     Dosage: ADMINISTERTED OVER 2 DAYS FOR 14 DAY CYCLE
     Route: 042
  3. DOXORUBICIN [Suspect]
     Indication: EWING^S SARCOMA
     Dosage: ADMINISTERTED OVER 2 DAYS FOR 14 DAY CYCLE
     Route: 042
  4. VINCRISTINE [Suspect]
     Indication: DESMOPLASTIC SMALL ROUND CELL TUMOUR
     Dosage: 1.4 MG/M2, MAXIMUM DOSE 2 MG
     Route: 065
  5. VINCRISTINE [Suspect]
     Indication: UNDIFFERENTIATED SARCOMA
     Dosage: 1.4 MG/M2, MAXIMUM DOSE 2 MG
     Route: 065
  6. VINCRISTINE [Suspect]
     Indication: EWING^S SARCOMA
     Dosage: 1.4 MG/M2, MAXIMUM DOSE 2 MG
     Route: 065
  7. CYCLOPHOSPHAMIDE [Suspect]
     Indication: DESMOPLASTIC SMALL ROUND CELL TUMOUR
     Dosage: ADMINISTERTED OVER 2 DAYS OF 14 DAY CYCLE
     Route: 065
  8. CYCLOPHOSPHAMIDE [Suspect]
     Indication: UNDIFFERENTIATED SARCOMA
     Dosage: ADMINISTERTED OVER 2 DAYS OF 14 DAY CYCLE
     Route: 065
  9. CYCLOPHOSPHAMIDE [Suspect]
     Indication: EWING^S SARCOMA
     Dosage: ADMINISTERTED OVER 2 DAYS OF 14 DAY CYCLE
     Route: 065
  10. IFOSFAMIDE [Suspect]
     Indication: DESMOPLASTIC SMALL ROUND CELL TUMOUR
     Dosage: FRACTIONATED OVER 5 DAYS.
     Route: 065
  11. IFOSFAMIDE [Suspect]
     Indication: UNDIFFERENTIATED SARCOMA
     Dosage: FRACTIONATED OVER 5 DAYS.
     Route: 065
  12. IFOSFAMIDE [Suspect]
     Indication: EWING^S SARCOMA
     Dosage: FRACTIONATED OVER 5 DAYS.
     Route: 065
  13. ETOPOSIDE [Suspect]
     Indication: UNDIFFERENTIATED SARCOMA
     Dosage: FRACTIONATED OVER 5 DAYS. 20% OF DOSE REDUCTION AT CYCLE 8 AND ADDITIONAL 20% AT CYCLE 12.
     Route: 065
  14. ETOPOSIDE [Suspect]
     Indication: DESMOPLASTIC SMALL ROUND CELL TUMOUR
     Dosage: FRACTIONATED OVER 5 DAYS. 20% OF DOSE REDUCTION AT CYCLE 8 AND ADDITIONAL 20% AT CYCLE 12.
     Route: 065
  15. ETOPOSIDE [Suspect]
     Indication: EWING^S SARCOMA
     Dosage: FRACTIONATED OVER 5 DAYS. 20% OF DOSE REDUCTION AT CYCLE 8 AND ADDITIONAL 20% AT CYCLE 12.
     Route: 065
  16. ALL OTHER THERAPEUTICS [Concomitant]
     Route: 065
  17. GRANULOCYTE COLONY-STIMULATING FACTOR (GCSF) [Concomitant]
     Route: 065

REACTIONS (14)
  - Neutropenia [Unknown]
  - Anaemia [Unknown]
  - Thrombocytopenia [Unknown]
  - Febrile neutropenia [Unknown]
  - Anaemia [Unknown]
  - Mucosal inflammation [Unknown]
  - Fatigue [Unknown]
  - Neuropathy peripheral [Unknown]
  - Diarrhoea [Unknown]
  - Nausea [Unknown]
  - Vomiting [Unknown]
  - Thrombocytopenia [Unknown]
  - Infection [Unknown]
  - Off label use [Unknown]
